FAERS Safety Report 7723661-8 (Version None)
Quarter: 2011Q3

REPORT INFORMATION
  Report Type: 
  Country: None (occurrence: None)
  Receive Date: 20110826
  Receipt Date: 20110816
  Transmission Date: 20111222
  Serious: Yes (Death, Hospitalization)
  Sender: FDA-Public Use
  Company Number: ACO_26291_2011

PATIENT
  Age: 53 Year
  Sex: Female

DRUGS (11)
  1. NAMENDA [Concomitant]
  2. RITALIN [Concomitant]
  3. NAPROXEN [Concomitant]
  4. ANTIPSORIATICS CREAM [Concomitant]
  5. CELEXA [Concomitant]
  6. FOLIC ACID [Concomitant]
  7. WELLBUTRIN XL [Concomitant]
  8. AMPYRA [Suspect]
     Indication: MULTIPLE SCLEROSIS
     Dosage: 10 MG, BID, ORAL
     Route: 048
     Dates: start: 20100913, end: 20110727
  9. REBIF [Concomitant]
  10. TRILEPTAL [Concomitant]
  11. ARICEPT [Concomitant]

REACTIONS (3)
  - PULSE ABSENT [None]
  - FALL [None]
  - HYPOXIC-ISCHAEMIC ENCEPHALOPATHY [None]
